FAERS Safety Report 4703729-0 (Version None)
Quarter: 2005Q2

REPORT INFORMATION
  Report Type: 
  Country: None (occurrence: None)
  Receive Date: 20050208
  Receipt Date: 20050208
  Transmission Date: 20051028
  Serious: Yes (Other)
  Sender: FDA-Public Use
  Company Number: None

PATIENT
  Sex: Female
  Weight: 97.0698 kg

DRUGS (2)
  1. TIAZAC [Suspect]
     Indication: HYPERTENSION
     Dosage: PO ONE DAILY
     Route: 048
  2. TIAZAC [Suspect]
     Indication: RAYNAUD'S PHENOMENON
     Dosage: PO ONE DAILY
     Route: 048

REACTIONS (4)
  - CYANOSIS [None]
  - DRUG EFFECT DECREASED [None]
  - PHARMACEUTICAL PRODUCT COMPLAINT [None]
  - THERAPEUTIC RESPONSE UNEXPECTED WITH DRUG SUBSTITUTION [None]
